FAERS Safety Report 19195906 (Version 1)
Quarter: 2021Q2

REPORT INFORMATION
  Report Type: Report from Study
  Country: US (occurrence: US)
  Receive Date: 20210429
  Receipt Date: 20210429
  Transmission Date: 20210717
  Serious: Yes (Other)
  Sender: FDA-Public Use
  Company Number: US-JNJFOC-20210418496

PATIENT
  Age: 33 Year
  Sex: Male

DRUGS (4)
  1. MACITENTAN [Suspect]
     Active Substance: MACITENTAN
     Indication: PULMONARY ARTERIAL HYPERTENSION
     Dosage: 10 MG 10MG ORAL DAILY
     Route: 048
     Dates: start: 20210225
  2. SELEXIPAG [Suspect]
     Active Substance: SELEXIPAG
     Indication: PULMONARY ARTERIAL HYPERTENSION
     Route: 048
     Dates: start: 20210309
  3. SELEXIPAG [Suspect]
     Active Substance: SELEXIPAG
     Route: 048
     Dates: start: 20210402
  4. SELEXIPAG [Suspect]
     Active Substance: SELEXIPAG
     Route: 048
     Dates: start: 20210331

REACTIONS (5)
  - Nausea [Unknown]
  - Migraine [Unknown]
  - Asthenia [Unknown]
  - Dizziness [Unknown]
  - Syncope [Unknown]

NARRATIVE: CASE EVENT DATE: 2021
